FAERS Safety Report 16614828 (Version 2)
Quarter: 2019Q3

REPORT INFORMATION
  Report Type: Spontaneous
  Country: US (occurrence: US)
  Receive Date: 20190723
  Receipt Date: 20190926
  Transmission Date: 20191004
  Serious: No
  Sender: FDA-Public Use
  Company Number: US-PFIZER INC-2019172080

PATIENT
  Age: 56 Year
  Sex: Female
  Weight: 73 kg

DRUGS (3)
  1. LEFLUNOMIDE. [Interacting]
     Active Substance: LEFLUNOMIDE
     Indication: RHEUMATOID ARTHRITIS
     Dosage: 20 MG, DAILY
     Dates: start: 2013
  2. XELJANZ XR [Interacting]
     Active Substance: TOFACITINIB CITRATE
     Dosage: 11 MG, DAILY
     Route: 048
     Dates: start: 20181020
  3. XELJANZ XR [Suspect]
     Active Substance: TOFACITINIB CITRATE
     Indication: RHEUMATOID ARTHRITIS
     Dosage: 11 MG, DAILY
     Dates: start: 2016

REACTIONS (2)
  - Food interaction [Recovered/Resolved]
  - Diarrhoea [Recovered/Resolved]
